FAERS Safety Report 9342321 (Version 3)
Quarter: 2013Q2

REPORT INFORMATION
  Report Type: Spontaneous
  Country: FR (occurrence: FR)
  Receive Date: 20130611
  Receipt Date: 20130625
  Transmission Date: 20140414
  Serious: Yes (Hospitalization)
  Sender: FDA-Public Use
  Company Number: FR-009507513-1306FRA000481

PATIENT
  Age: 74 Year
  Sex: Male

DRUGS (10)
  1. INVANZ [Suspect]
     Indication: PROSTATITIS ESCHERICHIA COLI
     Dosage: 1 DF, QD
     Route: 042
     Dates: start: 20130308, end: 20130311
  2. INVANZ [Suspect]
     Dosage: UNK
     Route: 042
     Dates: start: 20130314, end: 20130319
  3. CARDENSIEL [Concomitant]
     Dosage: UNK
     Route: 048
  4. PREVISCAN [Concomitant]
     Dosage: UNK
     Route: 048
  5. BACTRIM [Concomitant]
     Dosage: 1 DF, QD
     Route: 048
  6. AMLOR [Concomitant]
     Dosage: 1 DF, QD
     Route: 048
  7. LASILIX [Concomitant]
     Dosage: 1 DF, QD
     Route: 048
  8. INEXIUM [Concomitant]
     Dosage: 1 DF, QD
     Route: 048
  9. KARDEGIC [Concomitant]
     Dosage: 1 DF, QD
     Route: 048
  10. PLAVIX [Concomitant]
     Dosage: 1 DF, QD
     Route: 048

REACTIONS (3)
  - Hepatitis [Recovering/Resolving]
  - Cholestasis [Recovering/Resolving]
  - Hepatocellular injury [Recovering/Resolving]
